FAERS Safety Report 9357512 (Version 2)
Quarter: 2013Q3

REPORT INFORMATION
  Report Type: Report from Study
  Country: BR (occurrence: BR)
  Receive Date: 20130620
  Receipt Date: 20130722
  Transmission Date: 20140515
  Serious: Yes (Other)
  Sender: FDA-Public Use
  Company Number: PHHY2013BR062939

PATIENT
  Age: 33 Year
  Sex: Female
  Weight: 59 kg

DRUGS (7)
  1. EXJADE [Suspect]
     Indication: SICKLE CELL ANAEMIA
     Dosage: 50 MG, BID
  2. EXJADE [Suspect]
     Indication: SERUM FERRITIN INCREASED
     Dosage: 50 MG, BID
     Dates: start: 201212
  3. EXJADE [Suspect]
     Dosage: 500 MG, (2 TABLETS), DAILY
     Route: 048
  4. EXJADE [Suspect]
     Dosage: 500 MG, 2 TABLETS, DAILY
     Route: 048
     Dates: start: 201212
  5. HYDROXYUREA [Concomitant]
     Indication: ANAEMIA
     Dosage: UNK UKN, UNK
  6. HYDROXYUREA [Concomitant]
     Dosage: 3 DF, DAILY
     Route: 048
  7. FOLIC ACID [Concomitant]
     Dosage: UNK UKN, UNK

REACTIONS (4)
  - Exposure during pregnancy [Unknown]
  - Foot fracture [Recovering/Resolving]
  - Migraine [Recovered/Resolved]
  - Serum ferritin increased [Unknown]
